FAERS Safety Report 22068930 (Version 2)
Quarter: 2024Q4

REPORT INFORMATION
  Report Type: Report from Study
  Country: US (occurrence: US)
  Receive Date: 20230307
  Receipt Date: 20241211
  Transmission Date: 20250115
  Serious: Yes (Hospitalization)
  Sender: AMNEAL
  Company Number: US-AMNEAL PHARMACEUTICALS-2022-AMRX-03098

PATIENT
  Sex: Female
  Weight: 70.567 kg

DRUGS (3)
  1. CARBIDOPA\LEVODOPA [Suspect]
     Active Substance: CARBIDOPA\LEVODOPA
     Indication: Parkinson^s disease
     Dosage: UNK
     Route: 065
  2. CARBIDOPA\LEVODOPA [Suspect]
     Active Substance: CARBIDOPA\LEVODOPA
     Dosage: 48.75/195 MG
     Route: 048
  3. CARBIDOPA\LEVODOPA [Suspect]
     Active Substance: CARBIDOPA\LEVODOPA
     Dosage: 48.75/195 MG CAPSULES, 4 /DAY
     Route: 048

REACTIONS (8)
  - Hospitalisation [Unknown]
  - Tremor [Unknown]
  - Fatigue [Unknown]
  - Asthenia [Unknown]
  - Skin tightness [Unknown]
  - Feeling abnormal [Unknown]
  - Memory impairment [Unknown]
  - Malaise [Unknown]
